FAERS Safety Report 16569534 (Version 1)
Quarter: 2019Q3

REPORT INFORMATION
  Report Type: Spontaneous
  Country: JP (occurrence: JP)
  Receive Date: 20190715
  Receipt Date: 20190715
  Transmission Date: 20191004
  Serious: Yes (Other)
  Sender: FDA-Public Use
  Company Number: JP-ROCHE-2354524

PATIENT
  Age: 24 Year
  Sex: Female

DRUGS (6)
  1. RITUXAN [Suspect]
     Active Substance: RITUXIMAB
     Indication: PROPHYLAXIS AGAINST TRANSPLANT REJECTION
     Route: 041
  2. CYCLOSPORIN A [Concomitant]
     Active Substance: CYCLOSPORINE
  3. TACROLIMUS. [Concomitant]
     Active Substance: TACROLIMUS
  4. BORTEZOMIB. [Concomitant]
     Active Substance: BORTEZOMIB
  5. METHYLPREDNISOLONE. [Concomitant]
     Active Substance: METHYLPREDNISOLONE
  6. MYCOPHENOLATE MOFETIL. [Suspect]
     Active Substance: MYCOPHENOLATE MOFETIL
     Indication: PRODUCT USED FOR UNKNOWN INDICATION
     Route: 065

REACTIONS (3)
  - Platelet count decreased [Unknown]
  - Bone marrow failure [Unknown]
  - Product use in unapproved indication [Unknown]
